FAERS Safety Report 25682198 (Version 1)
Quarter: 2025Q3

REPORT INFORMATION
  Report Type: Spontaneous
  Country: US (occurrence: None)
  Receive Date: 20250814
  Receipt Date: 20250814
  Transmission Date: 20251021
  Serious: No
  Sender: FDA-CTU
  Company Number: None

PATIENT
  Age: 27 Year
  Sex: Female
  Weight: 78.3 kg

DRUGS (3)
  1. ZEPBOUND [Suspect]
     Active Substance: TIRZEPATIDE
     Indication: Weight decreased
     Dates: start: 20250810
  2. ZEPBOUND [Suspect]
     Active Substance: TIRZEPATIDE
     Indication: Blood triglycerides increased
  3. Ibuprofen and electrolyte mix in water [Concomitant]

REACTIONS (4)
  - Swelling [None]
  - Neck pain [None]
  - Arthralgia [None]
  - Pain of skin [None]

NARRATIVE: CASE EVENT DATE: 20250811
